FAERS Safety Report 12598889 (Version 1)
Quarter: 2016Q3

REPORT INFORMATION
  Report Type: Spontaneous
  Country: US (occurrence: None)
  Receive Date: 20160726
  Receipt Date: 20160726
  Transmission Date: 20161109
  Serious: Yes (Death)
  Sender: FDA-Public Use
  Company Number: None

PATIENT
  Age: 74 Year
  Sex: Female

DRUGS (1)
  1. STELARA [Suspect]
     Active Substance: USTEKINUMAB
     Indication: PSORIASIS
     Dosage: 90MG/ML Q 2 MONTHS SQ?JUN/JUL 2016
     Route: 058
     Dates: start: 20131029, end: 201607

REACTIONS (1)
  - Death [None]

NARRATIVE: CASE EVENT DATE: 2016
